FAERS Safety Report 6781321-4 (Version None)
Quarter: 2010Q2

REPORT INFORMATION
  Report Type: 
  Country: None (occurrence: None)
  Receive Date: 20100621
  Receipt Date: 20100610
  Transmission Date: 20101027
  Serious: Yes (Hospitalization)
  Sender: FDA-Public Use
  Company Number: PHHY2010VE38298

PATIENT
  Sex: Female

DRUGS (3)
  1. EXJADE [Suspect]
     Dosage: 250 MG, QD
     Route: 048
     Dates: start: 20061027
  2. FOLIC ACID [Concomitant]
     Dosage: UNK
     Route: 048
  3. BLOOD TRANSFUSION, AUXILIARY PRODUCTS [Concomitant]

REACTIONS (4)
  - HAEMOGLOBIN DECREASED [None]
  - HAEMOLYSIS [None]
  - PNEUMONIA [None]
  - WHITE BLOOD CELL COUNT INCREASED [None]
